FAERS Safety Report 14436432 (Version 7)
Quarter: 2020Q4

REPORT INFORMATION
  Report Type: Report from Study
  Country: CN (occurrence: CN)
  Receive Date: 20180125
  Receipt Date: 20201201
  Transmission Date: 20210113
  Serious: Yes (Hospitalization)
  Sender: FDA-Public Use
  Company Number: CN-ROCHE-2056622

PATIENT
  Age: 66 Year
  Sex: Female
  Weight: 68 kg

DRUGS (20)
  1. NIFEDIPINE. [Concomitant]
     Active Substance: NIFEDIPINE
     Indication: HYPERTENSION
     Dates: start: 20170406
  2. RECOMBINANT HUMAN INSULIN [Concomitant]
     Active Substance: INSULIN HUMAN
     Indication: DIABETES MELLITUS
     Dates: start: 20170410
  3. PERTUZUMAB. [Suspect]
     Active Substance: PERTUZUMAB
     Indication: BREAST CANCER METASTATIC
     Dosage: LOADING DOSE (DOSE AS PER PROTOCOL)
     Route: 042
     Dates: start: 20170417
  4. PERTUZUMAB. [Suspect]
     Active Substance: PERTUZUMAB
     Dosage: MAINTENANCE DOSE: 420MG/14ML?DATE OF MOST RECENT DOSE OF BLINDED PERTUZUMAB: 04/JAN/2018
     Route: 042
  5. TRASTUZUMAB. [Suspect]
     Active Substance: TRASTUZUMAB
     Dosage: MAINTENANCE DOSE?DATE OF MOST RECENT DOSE (384 MG): 04/JAN/2018
     Route: 042
  6. ISOPHANE PROTAMINE BIOSYNTHETIC HUMAN INSULIN [Concomitant]
     Indication: DIABETES MELLITUS
     Dates: start: 20170410
  7. GLYCERINE [Concomitant]
     Active Substance: GLYCERIN
     Dates: start: 20170710, end: 20170710
  8. DEXAMETHASONE. [Concomitant]
     Active Substance: DEXAMETHASONE
     Indication: HYPERSENSITIVITY
     Dates: start: 20170416, end: 20171012
  9. CIMETIDINE [Concomitant]
     Active Substance: CIMETIDINE
     Dates: start: 20170417, end: 20171011
  10. DIPHENHYDRAMINE. [Concomitant]
     Active Substance: DIPHENHYDRAMINE
     Indication: HYPERSENSITIVITY
     Dates: start: 20170417, end: 20171011
  11. ALOE [Concomitant]
     Active Substance: ALOE
     Dates: start: 20170705, end: 20170709
  12. TRASTUZUMAB. [Suspect]
     Active Substance: TRASTUZUMAB
     Indication: BREAST CANCER METASTATIC
     Dosage: LOADING DOSE
     Route: 042
     Dates: start: 20170417
  13. BIFID TRIPLE VIABLE [Concomitant]
     Dates: start: 20170725, end: 20170728
  14. LACTULOSE. [Concomitant]
     Active Substance: LACTULOSE
     Indication: CONSTIPATION
     Route: 048
     Dates: start: 20170619, end: 20170624
  15. LACTULOSE. [Concomitant]
     Active Substance: LACTULOSE
     Dates: start: 20170617, end: 20170624
  16. TROPISETRON HYDROCHLORIDE [Concomitant]
     Active Substance: TROPISETRON HYDROCHLORIDE
     Dates: start: 20170417, end: 20171011
  17. BISOPROLOL FUMARATE. [Concomitant]
     Active Substance: BISOPROLOL FUMARATE
     Indication: HYPERTENSION
     Dates: start: 20170406
  18. VALSARTAN/HYDROCHLOROTHIAZIDE AHCL [Concomitant]
     Active Substance: HYDROCHLOROTHIAZIDE\VALSARTAN
     Indication: HYPERTENSION
     Dates: start: 20170406
  19. DOCETAXEL. [Suspect]
     Active Substance: DOCETAXEL
     Indication: BREAST CANCER METASTATIC
     Dosage: DATE OF MOST RECENT DOSE (124 MG) PRIOR TO SAE: 11/OCT/2017
     Route: 042
     Dates: start: 20170417
  20. HYDROPREDNISONE [Concomitant]
     Active Substance: PREDNISOLONE
     Indication: HYPERSENSITIVITY
     Dates: start: 20170510, end: 20171011

REACTIONS (1)
  - Blood glucose increased [Recovered/Resolved]

NARRATIVE: CASE EVENT DATE: 20180103
